FAERS Safety Report 5064292-0 (Version None)
Quarter: 2006Q3

REPORT INFORMATION
  Report Type: 
  Country: None (occurrence: None)
  Receive Date: 20060725
  Receipt Date: 20060710
  Transmission Date: 20061208
  Serious: Yes (Other)
  Sender: FDA-Public Use
  Company Number: TRP_0810_2006

PATIENT
  Age: 48 Year
  Sex: Female

DRUGS (9)
  1. RIBASPHERE [Suspect]
     Indication: HEPATITIS C
     Dosage: DF PO
     Route: 048
     Dates: start: 20060307
  2. PEG-INTRON [Suspect]
     Indication: HEPATITIS C
     Dosage: DF SC
     Route: 058
     Dates: start: 20060307
  3. LISINOPRIL [Concomitant]
  4. ABILIFY [Concomitant]
  5. GEODON [Concomitant]
  6. ADVAIR DISKUS 100/50 [Concomitant]
  7. DEPAKOTE [Concomitant]
  8. FEXOFENADINE W/PSEUDOEPHEDRINE HYDROCHLORIDE [Concomitant]
  9. MAXAIR [Concomitant]

REACTIONS (5)
  - MOVEMENT DISORDER [None]
  - MUSCLE TIGHTNESS [None]
  - MYALGIA [None]
  - PARANOIA [None]
  - WEIGHT INCREASED [None]
